FAERS Safety Report 16111644 (Version 1)
Quarter: 2019Q1

REPORT INFORMATION
  Report Type: Spontaneous
  Country: US (occurrence: US)
  Receive Date: 20190325
  Receipt Date: 20190325
  Transmission Date: 20190418
  Serious: Yes (Other)
  Sender: FDA-Public Use
  Company Number: US-PFIZER INC-2016037108

PATIENT
  Age: 71 Year
  Sex: Female
  Weight: 70.3 kg

DRUGS (19)
  1. HYDROCODONE BITARTRATE AND ACETAMINOPHEN [Concomitant]
     Active Substance: ACETAMINOPHEN\HYDROCODONE BITARTRATE
     Dosage: DOSE INCREASE
     Route: 048
  2. DULOXETINE. [Concomitant]
     Active Substance: DULOXETINE
     Indication: SPINAL CORD INJURY
     Dosage: 30 MG, 1X/DAY (WITH BREAKFAST)
     Route: 048
     Dates: start: 20160111
  3. TOPIRAMATE. [Concomitant]
     Active Substance: TOPIRAMATE
     Indication: PAIN IN EXTREMITY
     Dosage: 100 MG, 3X/DAY
     Route: 048
     Dates: start: 20151130
  4. LYRICA [Suspect]
     Active Substance: PREGABALIN
     Indication: NEUROPATHY PERIPHERAL
  5. ATORVASTATIN [Concomitant]
     Active Substance: ATORVASTATIN
     Dosage: 20 MG, 1X/DAY (AT BEDTIME)
     Route: 048
  6. LISINOPRIL. [Concomitant]
     Active Substance: LISINOPRIL
     Dosage: 20 MG, 1X/DAY
     Route: 048
  7. LYRICA [Suspect]
     Active Substance: PREGABALIN
     Indication: LUMBOSACRAL RADICULOPATHY
     Dosage: 100 MG, 4X/DAY
     Route: 048
  8. DULOXETINE. [Concomitant]
     Active Substance: DULOXETINE
     Dosage: 30 MG  TWICE (1 IN THE MORNING AND 1 AT NIGHT)
     Route: 048
     Dates: start: 20160111
  9. PARACETAMOL [Concomitant]
     Active Substance: ACETAMINOPHEN
     Dosage: 1000 MG, 4X/DAY EVERY 6 HOURS
     Route: 048
  10. OMEPRAZOLE. [Concomitant]
     Active Substance: OMEPRAZOLE
     Dosage: 10 MG, 1X/DAY (1 EA)
     Route: 048
  11. BACLOFEN. [Concomitant]
     Active Substance: BACLOFEN
     Dosage: 20 MG, 3X/DAY
     Route: 048
  12. TYLENOL EXTRA STRENGTH [Concomitant]
     Active Substance: ACETAMINOPHEN
     Dosage: 1000 MG, 4X/DAY
     Route: 048
  13. LYRICA [Suspect]
     Active Substance: PREGABALIN
     Indication: CERVICAL NEURITIS
     Dosage: 100 MG, 3X/DAY
     Route: 048
     Dates: start: 2005
  14. LYRICA [Suspect]
     Active Substance: PREGABALIN
     Indication: NEURALGIA
  15. TOPIRAMATE. [Concomitant]
     Active Substance: TOPIRAMATE
     Dosage: 50 MG, 2X/DAY [1 IN THE MORNING AND 1 AT NOON ]
     Route: 048
  16. HYDROCODONE BITARTRATE AND ACETAMINOPHEN [Concomitant]
     Active Substance: ACETAMINOPHEN\HYDROCODONE BITARTRATE
     Indication: NEURALGIA
     Dosage: (HYDROCODONE BITARTRATE 10MG, PARACETAMOL 325MG) 3-4 TABLETS
     Route: 048
     Dates: start: 2005
  17. CENTRUM SILVER THERAPEUTIC MULTIPLE VITAMINS WITH MINERALS [Concomitant]
     Dosage: 1 DF, 1X/DAY
     Route: 048
  18. LYRICA [Suspect]
     Active Substance: PREGABALIN
     Indication: PAIN
     Dosage: 100 MG, 3X/DAY
     Route: 048
     Dates: start: 2005
  19. TOPIRAMATE. [Concomitant]
     Active Substance: TOPIRAMATE
     Dosage: 100 MG, 1X/DAY [AT NIGHT BY MOUTH]
     Route: 048

REACTIONS (8)
  - Weight decreased [Unknown]
  - Intentional product misuse [Unknown]
  - Pain in extremity [Unknown]
  - Drug dependence [Unknown]
  - Mental impairment [Unknown]
  - Drug ineffective [Unknown]
  - Body height decreased [Unknown]
  - Pain [Unknown]

NARRATIVE: CASE EVENT DATE: 2015
